FAERS Safety Report 21028778 (Version 1)
Quarter: 2022Q2

REPORT INFORMATION
  Report Type: Spontaneous
  Country: DE (occurrence: None)
  Receive Date: 20220630
  Receipt Date: 20220630
  Transmission Date: 20220721
  Serious: Yes (Death)
  Sender: FDA-Public Use
  Company Number: 2022A239018

PATIENT
  Sex: Female
  Weight: 60 kg

DRUGS (7)
  1. QUETIAPINE [Suspect]
     Active Substance: QUETIAPINE
     Indication: Depression
     Route: 048
     Dates: start: 20210323, end: 20210702
  2. VENLAFAXINE [Suspect]
     Active Substance: VENLAFAXINE HYDROCHLORIDE
     Indication: Depression
     Dosage: 225 [MG/D (BIS 150 MG/D) ]/ REDUCTION TO 150 MG/D AT GW 23 1/7
     Route: 048
     Dates: start: 20210120, end: 20210731
  3. LITHIUM CARBONATE [Suspect]
     Active Substance: LITHIUM CARBONATE
     Indication: Depression
     Route: 048
     Dates: start: 20210422, end: 20210731
  4. TAVOR [Concomitant]
     Indication: Depression
     Route: 048
     Dates: start: 20210421, end: 20210421
  5. FLECAINIDE [Concomitant]
     Active Substance: FLECAINIDE
     Indication: Tachycardia foetal
     Dosage: 800 [MG/D (BIS 400) ]
     Route: 048
     Dates: start: 20210701, end: 20210730
  6. AMIODARONE [Concomitant]
     Active Substance: AMIODARONE
     Indication: Tachycardia foetal
     Dosage: 2.0DF ONCE/SINGLE ADMINISTRATION
     Route: 015
     Dates: start: 20210726, end: 20210730
  7. METOPROLOL SUCCINATE [Concomitant]
     Active Substance: METOPROLOL SUCCINATE
     Indication: Tachycardia foetal
     Route: 048
     Dates: start: 20210701, end: 20210730

REACTIONS (2)
  - Foetal death [Fatal]
  - Maternal exposure during pregnancy [Unknown]
